FAERS Safety Report 8332484-0 (Version None)
Quarter: 2012Q2

REPORT INFORMATION
  Report Type: 
  Country: None (occurrence: None)
  Receive Date: 20120503
  Receipt Date: 20120501
  Transmission Date: 20120825
  Serious: No
  Sender: FDA-Public Use
  Company Number: US-PFIZER INC-2012107150

PATIENT
  Sex: Female
  Weight: 66.22 kg

DRUGS (4)
  1. FERROUS SULFATE TAB [Concomitant]
     Indication: ANAEMIA
     Dosage: 325 MG, 1X/DAY
  2. CYANOCOBALAMIN [Concomitant]
     Indication: SUPPLEMENTATION THERAPY
     Dosage: 1000 UG, 1X/DAY
  3. NEURONTIN [Suspect]
     Indication: POSTOPERATIVE CARE
     Dosage: 300MG IN MORNING, 300MG IN AFTERNOON AND 600MG AT NIGHT, UNK
     Route: 048
     Dates: start: 20120401
  4. OMEPRAZOLE [Concomitant]
     Indication: GASTROOESOPHAGEAL REFLUX DISEASE
     Dosage: 20 MG, 1X/DAY

REACTIONS (2)
  - NERVOUSNESS [None]
  - SLEEP DISORDER [None]
